FAERS Safety Report 11793898 (Version 1)
Quarter: 2015Q4

REPORT INFORMATION
  Report Type: Spontaneous
  Country: US (occurrence: None)
  Receive Date: 20151201
  Receipt Date: 20151201
  Transmission Date: 20160305
  Serious: Yes (Disabling)
  Sender: FDA-Public Use
  Company Number: None

PATIENT
  Age: 48 Year
  Sex: Male
  Weight: 68.04 kg

DRUGS (3)
  1. CLONIDINE. [Concomitant]
     Active Substance: CLONIDINE
  2. CIALIS [Concomitant]
     Active Substance: TADALAFIL
  3. FINASTERIDE 5MG [Suspect]
     Active Substance: FINASTERIDE
     Dosage: 1 PILL ONCE DAILY TAKEN BY MOUITH
     Route: 048

REACTIONS (1)
  - Erectile dysfunction [None]

NARRATIVE: CASE EVENT DATE: 20151130
